FAERS Safety Report 16102878 (Version 3)
Quarter: 2021Q1

REPORT INFORMATION
  Report Type: Spontaneous
  Country: FR (occurrence: FR)
  Receive Date: 20190321
  Receipt Date: 20210210
  Transmission Date: 20210419
  Serious: Yes (Death, Hospitalization, Other)
  Sender: FDA-Public Use
  Company Number: FR-CELLTRION INC.-2019FR019540

PATIENT

DRUGS (11)
  1. DEXAMETHASONE. [Suspect]
     Active Substance: DEXAMETHASONE
     Indication: HYPERVISCOSITY SYNDROME
  2. CIPROFLOXACINE NOS [Suspect]
     Active Substance: CIPROFLOXACIN
     Indication: PSEUDOMONAS INFECTION
     Dosage: UNK
     Route: 065
  3. DEXAMETHASONE. [Suspect]
     Active Substance: DEXAMETHASONE
     Indication: WALDENSTROM^S MACROGLOBULINAEMIA
  4. IMIPENEM [Concomitant]
     Active Substance: IMIPENEM
  5. ENDOXAN [CYCLOPHOSPHAMIDE MONOHYDRATE] [Suspect]
     Active Substance: CYCLOPHOSPHAMIDE
     Indication: WALDENSTROM^S MACROGLOBULINAEMIA
  6. DEXAMETHASONE. [Suspect]
     Active Substance: DEXAMETHASONE
     Indication: NEPHROPATHY
     Dosage: UNK
     Route: 065
  7. ENDOXAN [CYCLOPHOSPHAMIDE MONOHYDRATE] [Suspect]
     Active Substance: CYCLOPHOSPHAMIDE
     Indication: HYPERVISCOSITY SYNDROME
  8. RITUXIMAB (UNKNOWN) [Suspect]
     Active Substance: RITUXIMAB
     Indication: WALDENSTROM^S MACROGLOBULINAEMIA
     Dosage: UNK
     Route: 065
  9. ENDOXAN [CYCLOPHOSPHAMIDE MONOHYDRATE] [Suspect]
     Active Substance: CYCLOPHOSPHAMIDE
     Indication: NEPHROPATHY
     Dosage: UNK
     Route: 065
  10. IDELALISIB [Concomitant]
     Active Substance: IDELALISIB
     Dosage: AFTER DERMOCORTICOID TREATMENT AT 100 MG TWICE A DAY
  11. IDELALISIB [Concomitant]
     Active Substance: IDELALISIB
     Dosage: 150 MG, BID

REACTIONS (9)
  - Product use in unapproved indication [Unknown]
  - Pseudomonas infection [Unknown]
  - Mucocutaneous haemorrhage [Unknown]
  - Encephalopathy [Fatal]
  - Confusional state [Unknown]
  - Oliguria [Unknown]
  - Septic shock [Fatal]
  - Drug ineffective [Fatal]
  - Dysarthria [Unknown]
